FAERS Safety Report 25837551 (Version 2)
Quarter: 2025Q3

REPORT INFORMATION
  Report Type: Report from Study
  Country: US (occurrence: US)
  Receive Date: 20250923
  Receipt Date: 20250925
  Transmission Date: 20251020
  Serious: No
  Sender: MALLINCKRODT
  Company Number: US-MALLINCKRODT-MNK202505826

PATIENT
  Age: 56 Year
  Sex: Female

DRUGS (3)
  1. CORTICOTROPIN [Suspect]
     Active Substance: CORTICOTROPIN
     Indication: Idiopathic orbital inflammation
     Route: 058
     Dates: start: 20250913
  2. B12 [Concomitant]
  3. TEPEZZA [Concomitant]
     Active Substance: TEPROTUMUMAB-TRBW
     Indication: Graves^ disease

REACTIONS (10)
  - Anxiety [Unknown]
  - Muscle spasms [Unknown]
  - Somnolence [Unknown]
  - Fear of injection [Unknown]
  - Eye pain [Unknown]
  - Frustration tolerance decreased [Unknown]
  - Eye irritation [Unknown]
  - Fatigue [Unknown]
  - Depression [Unknown]
  - Asthenia [Unknown]

NARRATIVE: CASE EVENT DATE: 20250901
